FAERS Safety Report 10601865 (Version 1)
Quarter: 2014Q4

REPORT INFORMATION
  Report Type: Spontaneous
  Country: IT (occurrence: None)
  Receive Date: 20141120
  Receipt Date: 20141120
  Transmission Date: 20150529
  Serious: Yes (Other)
  Sender: FDA-Public Use
  Company Number: COR_00160-2014

PATIENT
  Age: 61 Year
  Sex: Female

DRUGS (1)
  1. CARBOPLATIN (CARBOPLATIN) 0.1 MG [Suspect]
     Active Substance: CARBOPLATIN
     Indication: OVARIAN CANCER METASTATIC
     Dosage: EIGHT INFUSIONS INTRANEOUS (NOT OTHERWISE SPECIFIED)?
     Route: 042

REACTIONS (4)
  - Malignant neoplasm progression [None]
  - Anaphylactic shock [None]
  - Ovarian cancer metastatic [None]
  - Drug hypersensitivity [None]
